FAERS Safety Report 4483546-X (Version None)
Quarter: 2004Q4

REPORT INFORMATION
  Report Type: 
  Country: None (occurrence: None)
  Receive Date: 20041021
  Receipt Date: 20041021
  Transmission Date: 20050328
  Serious: Yes (Other)
  Sender: FDA-Public Use
  Company Number: None

PATIENT
  Age: 13 Year
  Sex: Male
  Weight: 55.3388 kg

DRUGS (5)
  1. STRATTERA [Suspect]
     Indication: ATTENTION DEFICIT/HYPERACTIVITY DISORDER
     Dosage: 75 MG PO Q AM
     Route: 048
     Dates: start: 20040705, end: 20040722
  2. ADDERALL 20 [Concomitant]
  3. DEPAKOTE [Concomitant]
  4. ZOLOFT [Concomitant]
  5. DDAVP [Concomitant]

REACTIONS (1)
  - PRIAPISM [None]
